FAERS Safety Report 6574493-8 (Version None)
Quarter: 2010Q1

REPORT INFORMATION
  Report Type: 
  Country: None (occurrence: None)
  Receive Date: 20100209
  Receipt Date: 20090928
  Transmission Date: 20100710
  Serious: No
  Sender: FDA-Public Use
  Company Number: A0809312A

PATIENT
  Age: 16 Year
  Sex: Female

DRUGS (5)
  1. PAXIL [Suspect]
     Indication: PAIN
     Dosage: 10MG PER DAY
     Route: 048
     Dates: start: 19960101
  2. PAROXETINE HCL [Suspect]
     Indication: PAIN
     Dosage: 10MG PER DAY
     Route: 048
     Dates: end: 20050101
  3. PRILOSEC [Concomitant]
  4. BIRTH CONTROL PILL [Concomitant]
  5. ZYRTEC [Concomitant]

REACTIONS (1)
  - ALOPECIA [None]
